FAERS Safety Report 15901284 (Version 1)
Quarter: 2019Q1

REPORT INFORMATION
  Report Type: Spontaneous
  Country: CN (occurrence: CN)
  Receive Date: 20190201
  Receipt Date: 20190201
  Transmission Date: 20190417
  Serious: Yes (Hospitalization)
  Sender: FDA-Public Use
  Company Number: CN-PFIZER INC-2019038930

PATIENT
  Age: 69 Year
  Sex: Male
  Weight: 70 kg

DRUGS (3)
  1. CELEBREX [Suspect]
     Active Substance: CELECOXIB
     Indication: ANALGESIC THERAPY
     Dosage: 200 MG, 1X/DAY
     Route: 048
     Dates: start: 20181121, end: 20181123
  2. CELEBREX [Suspect]
     Active Substance: CELECOXIB
     Indication: PYREXIA
  3. CELEBREX [Suspect]
     Active Substance: CELECOXIB
     Indication: BURNING SENSATION

REACTIONS (4)
  - Temperature intolerance [Recovering/Resolving]
  - Cardiomyopathy acute [Recovering/Resolving]
  - Chills [Recovering/Resolving]
  - Body temperature increased [Recovering/Resolving]

NARRATIVE: CASE EVENT DATE: 20181122
